FAERS Safety Report 8579794-X (Version None)
Quarter: 2012Q3

REPORT INFORMATION
  Report Type: 
  Country: None (occurrence: None)
  Receive Date: 20120808
  Receipt Date: 20120801
  Transmission Date: 20120928
  Serious: Yes (Other)
  Sender: FDA-Public Use
  Company Number: JP-ABBOTT-12P-087-0964496-00

PATIENT
  Sex: Male
  Weight: 31 kg

DRUGS (6)
  1. L-CARBOCYSTEINE [Concomitant]
     Indication: MYCOPLASMA INFECTION
     Route: 048
     Dates: start: 20120627, end: 20120629
  2. HOKUNALIN [Concomitant]
     Indication: MYCOPLASMA INFECTION
     Route: 048
     Dates: start: 20120627, end: 20120629
  3. CLARITHROMYCIN [Suspect]
     Indication: ARTHROPOD STING
     Route: 048
     Dates: start: 20120622, end: 20120623
  4. TIPEPIDINE HIBENZATE [Concomitant]
     Indication: MYCOPLASMA INFECTION
     Route: 048
     Dates: start: 20120627, end: 20120629
  5. OZEX FINE GRANULE [Suspect]
     Indication: MYCOPLASMA INFECTION
     Route: 048
     Dates: start: 20120627, end: 20120629
  6. UNKNOWN DRUG (ACETAMINOPHEN) [Concomitant]
     Indication: MYCOPLASMA INFECTION
     Route: 048
     Dates: start: 20120627, end: 20120629

REACTIONS (1)
  - RENAL IMPAIRMENT [None]
